FAERS Safety Report 18436608 (Version 4)
Quarter: 2020Q4

REPORT INFORMATION
  Report Type: Spontaneous
  Country: RO (occurrence: RO)
  Receive Date: 20201028
  Receipt Date: 20201204
  Transmission Date: 20210114
  Serious: Yes (Hospitalization, Other)
  Sender: FDA-Public Use
  Company Number: RO-MYLANLABS-2020M1090167

PATIENT
  Age: 24 Year
  Sex: Female

DRUGS (12)
  1. EMTRIVA [Suspect]
     Active Substance: EMTRICITABINE
     Indication: ANTIRETROVIRAL THERAPY
  2. TENOFOVIR DISOPROXIL [Suspect]
     Active Substance: TENOFOVIR DISOPROXIL
     Indication: ANTIRETROVIRAL THERAPY
  3. OFLOXACIN. [Concomitant]
     Active Substance: OFLOXACIN
     Indication: ANTIBIOTIC THERAPY
  4. OFLOXACIN. [Concomitant]
     Active Substance: OFLOXACIN
     Indication: EXTRAPULMONARY TUBERCULOSIS
     Dosage: UNK
     Dates: start: 201909
  5. ISONIAZID. [Concomitant]
     Active Substance: ISONIAZID
     Indication: ANTIBIOTIC THERAPY
     Dosage: UNK
     Dates: start: 201909
  6. TENOFOVIR DISOPROXIL [Suspect]
     Active Substance: TENOFOVIR DISOPROXIL
     Indication: HIV INFECTION
     Dosage: UNK
     Route: 065
     Dates: start: 2019
  7. TIVICAY [Suspect]
     Active Substance: DOLUTEGRAVIR SODIUM
     Indication: HIV INFECTION
     Dosage: UNK
     Route: 065
     Dates: start: 2019
  8. EMTRIVA [Suspect]
     Active Substance: EMTRICITABINE
     Indication: HIV INFECTION
     Dosage: UNK
     Route: 065
     Dates: start: 2019
  9. ETHAMBUTOL W/ISONIAZID/RIFAMPICIN [Concomitant]
     Active Substance: ETHAMBUTOL\ISONIAZID\RIFAMPIN
     Indication: EXTRAPULMONARY TUBERCULOSIS
  10. ETHAMBUTOL [Concomitant]
     Active Substance: ETHAMBUTOL HYDROCHLORIDE
     Indication: ANTIBIOTIC THERAPY
     Dosage: UNK
     Dates: start: 201909
  11. TIVICAY [Suspect]
     Active Substance: DOLUTEGRAVIR SODIUM
     Indication: ANTIRETROVIRAL THERAPY
  12. RIFAMPICIN [Concomitant]
     Active Substance: RIFAMPIN
     Indication: ANTIBIOTIC THERAPY
     Dosage: UNK
     Dates: start: 201909

REACTIONS (8)
  - Back pain [Unknown]
  - Pain [Unknown]
  - Toxoplasmosis [Unknown]
  - Immune reconstitution inflammatory syndrome [Unknown]
  - Intervertebral disc protrusion [Unknown]
  - Staphylococcal bacteraemia [Unknown]
  - Neurological symptom [Recovering/Resolving]
  - Cytomegalovirus infection [Unknown]

NARRATIVE: CASE EVENT DATE: 2019
